FAERS Safety Report 26210110 (Version 1)
Quarter: 2025Q4

REPORT INFORMATION
  Report Type: Spontaneous
  Country: GB (occurrence: GB)
  Receive Date: 20251229
  Receipt Date: 20251229
  Transmission Date: 20260117
  Serious: Yes (Hospitalization)
  Sender: MYLAN
  Company Number: GB-MYLANLABS-2025M1110149

PATIENT
  Age: 66 Year
  Sex: Female

DRUGS (3)
  1. GEMCITABINE [Suspect]
     Active Substance: GEMCITABINE
     Indication: Pancreatic carcinoma metastatic
     Dosage: UNK, OVER 30 MIN (VIA PERIPHERALLY INSERTED CENTRAL CANNULA; OVER 30 MIN)
  2. GEMCITABINE [Suspect]
     Active Substance: GEMCITABINE
     Indication: Pancreatic carcinoma metastatic
     Dosage: UNK (NEOADJUVANT THERAPY)
  3. PACLITAXEL [Concomitant]
     Active Substance: PACLITAXEL
     Indication: Pancreatic carcinoma metastatic
     Dosage: UNK

REACTIONS (4)
  - Atrial tachycardia [Recovering/Resolving]
  - Biliary sepsis [Unknown]
  - Biliary obstruction [Unknown]
  - COVID-19 [Unknown]
